FAERS Safety Report 5567682-2 (Version None)
Quarter: 2007Q4

REPORT INFORMATION
  Report Type: 
  Country: None (occurrence: None)
  Receive Date: 20071214
  Receipt Date: 20071203
  Transmission Date: 20080405
  Serious: Yes (Other)
  Sender: FDA-Public Use
  Company Number: 2007SP024691

PATIENT
  Age: 30 Year
  Sex: Male

DRUGS (8)
  1. PEG-INTRON [Suspect]
     Indication: HEPATITIS C
     Dosage: 120 MCG; QW; SC
     Route: 058
     Dates: start: 20070511, end: 20071126
  2. REBETOL [Suspect]
     Indication: HEPATITIS C
     Dosage: 1000 MG; QD; PO
     Route: 048
     Dates: start: 20070511, end: 20071126
  3. TRAMADOL HCL [Concomitant]
  4. ADVIL LIQUI-GELS [Concomitant]
  5. AMITRIPTLINE HCL [Concomitant]
  6. VIAGRA [Concomitant]
  7. DOVONEX [Concomitant]
  8. CLOBETASOL PROPIONATE [Concomitant]

REACTIONS (2)
  - HOMICIDE [None]
  - IMPRISONMENT [None]
